FAERS Safety Report 7637141-1 (Version None)
Quarter: 2011Q3

REPORT INFORMATION
  Report Type: 
  Country: None (occurrence: None)
  Receive Date: 20110726
  Receipt Date: 20110715
  Transmission Date: 20111222
  Serious: Yes (Hospitalization, Other)
  Sender: FDA-Public Use
  Company Number: AR-MEDIMMUNE-MEDI-0013344

PATIENT
  Sex: Male
  Weight: 3.4 kg

DRUGS (1)
  1. SYNAGIS [Suspect]
     Route: 030
     Dates: start: 20110517, end: 20110616

REACTIONS (3)
  - RESPIRATORY DISTRESS [None]
  - HYPERTHERMIA [None]
  - BRONCHIOLITIS [None]
